FAERS Safety Report 6807886-1 (Version None)
Quarter: 2010Q2

REPORT INFORMATION
  Report Type: 
  Country: None (occurrence: None)
  Receive Date: 20100629
  Receipt Date: 20090324
  Transmission Date: 20101027
  Serious: Yes (Other)
  Sender: FDA-Public Use
  Company Number: US-PFIZER INC-2009162642

PATIENT
  Sex: Male
  Weight: 88.435 kg

DRUGS (3)
  1. VIAGRA [Suspect]
     Indication: ERECTILE DYSFUNCTION
     Dosage: 100 MG, AS NEEDED
     Dates: start: 20041028, end: 20050101
  2. LIPITOR [Concomitant]
     Indication: DYSLIPIDAEMIA
     Dosage: UNK
  3. ASPIRIN [Concomitant]
     Dosage: UNK

REACTIONS (2)
  - DEAFNESS [None]
  - HEADACHE [None]
